FAERS Safety Report 11125208 (Version 5)
Quarter: 2015Q3

REPORT INFORMATION
  Report Type: Report from Study
  Country: JP (occurrence: JP)
  Receive Date: 20150520
  Receipt Date: 20150702
  Transmission Date: 20151125
  Serious: Yes (Hospitalization)
  Sender: FDA-Public Use
  Company Number: JP-MERCK-1505JPN005033

PATIENT
  Age: 67 Year
  Sex: Male
  Weight: 63.7 kg

DRUGS (23)
  1. POLAPREZINC [Concomitant]
     Active Substance: POLAPREZINC
     Indication: DUODENAL ULCER HAEMORRHAGE
     Dosage: 300 MG, QD
     Route: 048
     Dates: start: 20141112
  2. OXYCONTIN [Concomitant]
     Active Substance: OXYCODONE HYDROCHLORIDE
     Indication: CANCER PAIN
     Dosage: TOTAL DAILY DOSE 20 MG
     Route: 048
     Dates: start: 20141201
  3. OXINORM (OXYCODONE HYDROCHLORIDE) [Concomitant]
     Active Substance: OXYCODONE HYDROCHLORIDE
     Indication: CANCER PAIN
     Dosage: TOTAL DAILY DOSE 2.5MG, PRN
     Route: 048
     Dates: start: 20150124
  4. MAGMITT [Concomitant]
     Active Substance: MAGNESIUM OXIDE
     Indication: CONSTIPATION
     Dosage: 500 MG, QID
     Route: 048
     Dates: start: 20150113
  5. ICHIJIKU ENEMA [Concomitant]
     Indication: CONSTIPATION
     Dosage: TOTAL DAILY DOSE 30 G, PRN
     Route: 061
     Dates: start: 20150209
  6. PLAVIX [Concomitant]
     Active Substance: CLOPIDOGREL BISULFATE
     Indication: CEREBRAL ARTERY STENOSIS
     Dosage: 75 MG, QD
     Route: 048
     Dates: start: 201301
  7. SENNOSIDES. [Concomitant]
     Active Substance: SENNOSIDES
     Indication: GASTROINTESTINAL DISORDER
     Dosage: TOTAL DAILY DOSE 24MG, PRN
     Route: 048
     Dates: start: 20141220
  8. PEMBROLIZUMAB. [Suspect]
     Active Substance: PEMBROLIZUMAB
     Indication: MALIGNANT MELANOMA
     Dosage: 2 MG/KG, Q3W
     Route: 042
     Dates: start: 20140929, end: 20150406
  9. PLAVIX [Concomitant]
     Active Substance: CLOPIDOGREL BISULFATE
     Indication: NEUROPATHY PERIPHERAL
  10. PEMBROLIZUMAB. [Suspect]
     Active Substance: PEMBROLIZUMAB
     Dosage: 2 MG/KG, Q3W
     Route: 042
     Dates: start: 20150427, end: 20150427
  11. CRESTOR [Concomitant]
     Active Substance: ROSUVASTATIN CALCIUM
     Indication: HYPERLIPIDAEMIA
     Dosage: 180 MG, QD
     Route: 048
     Dates: start: 200902
  12. PLAVIX [Concomitant]
     Active Substance: CLOPIDOGREL BISULFATE
     Indication: CAROTID ARTERY STENOSIS
  13. NEXIUM [Concomitant]
     Active Substance: ESOMEPRAZOLE MAGNESIUM
     Indication: DUODENAL ULCER HAEMORRHAGE
     Dosage: 20 MG, QD
     Route: 048
     Dates: start: 20141112
  14. LANTUS [Concomitant]
     Active Substance: INSULIN GLARGINE
     Indication: DIABETES MELLITUS
     Dosage: 24 U, ONCE
     Route: 061
     Dates: start: 20141211
  15. DAI-KENCHU-TO [Concomitant]
     Active Substance: MALTOSE
     Indication: GASTROINTESTINAL DISORDER
     Dosage: 2.5 MG, BID
     Route: 048
     Dates: start: 20150319, end: 20150507
  16. CALONAL [Concomitant]
     Active Substance: ACETAMINOPHEN
     Indication: DUODENAL ULCER HAEMORRHAGE
     Dosage: TOTAL DAILY DOSE 1200 MG
     Route: 048
     Dates: start: 20141114
  17. MYSER (DIFLUPREDNATE) [Concomitant]
     Active Substance: DIFLUPREDNATE
     Indication: PRURITUS
     Dosage: TOTAL DAILY DOSE 0.05%,FORMULATION: SOLUTION
     Route: 061
     Dates: start: 20141020
  18. LYRICA [Concomitant]
     Active Substance: PREGABALIN
     Indication: CANCER PAIN
     Dosage: 75 MG, BID
     Route: 048
     Dates: start: 20150309
  19. SODIUM PICOSULFATE [Concomitant]
     Active Substance: SODIUM PICOSULFATE
     Indication: CONSTIPATION
     Dosage: TOTAL DAILY DOSE 1 GTT, PRN
     Route: 048
     Dates: start: 20150316
  20. HUMALOG [Concomitant]
     Active Substance: INSULIN LISPRO
     Indication: DIABETES MELLITUS
     Dosage: 42 U, ONCE
     Route: 061
     Dates: start: 20141211
  21. CALONAL [Concomitant]
     Active Substance: ACETAMINOPHEN
     Indication: CHEST PAIN
  22. CLENAFIN [Concomitant]
     Indication: ONYCHOMYCOSIS
     Dosage: 10 %, QD
     Route: 061
     Dates: start: 20141010
  23. MOHRUS [Concomitant]
     Active Substance: KETOPROFEN
     Indication: CANCER PAIN
     Dosage: TOTAL DAILY DOSE 20MG, PRN. FORMULATION: PATCH
     Route: 061
     Dates: start: 20150316

REACTIONS (1)
  - Bile duct obstruction [Not Recovered/Not Resolved]

NARRATIVE: CASE EVENT DATE: 20150511
